FAERS Safety Report 9260841 (Version 2)
Quarter: 2013Q2

REPORT INFORMATION
  Report Type: Spontaneous
  Country: JP (occurrence: JP)
  Receive Date: 20130429
  Receipt Date: 20130528
  Transmission Date: 20140414
  Serious: Yes (Other)
  Sender: FDA-Public Use
  Company Number: JP-PFIZER INC-2013131691

PATIENT
  Age: 58 Year
  Sex: Male
  Weight: 87.1 kg

DRUGS (6)
  1. LYRICA [Suspect]
     Indication: NEURALGIA
     Dosage: 25 MG/DAY
     Route: 048
     Dates: start: 20130401, end: 20130405
  2. LYRICA [Suspect]
     Dosage: 50 MG/DAY
     Route: 048
     Dates: start: 20130406, end: 20130410
  3. LYRICA [Suspect]
     Dosage: 75 MG/DAY
     Route: 048
     Dates: start: 20130411, end: 20130411
  4. LYRICA [Suspect]
     Dosage: 25 MG/DAY
     Route: 048
     Dates: start: 20130412, end: 20130415
  5. TRAMCET [Suspect]
     Indication: NEURALGIA
     Dosage: 4 DF, 4X/DAY
     Route: 048
     Dates: start: 20130408
  6. FENTANYL [Suspect]
     Indication: NEURALGIA
     Dosage: 0.2 MG, UNK
     Route: 058
     Dates: start: 20130330, end: 20130412

REACTIONS (2)
  - Drug withdrawal syndrome [Unknown]
  - Hallucination, visual [Recovered/Resolved]
